FAERS Safety Report 12253858 (Version 2)
Quarter: 2016Q2

REPORT INFORMATION
  Report Type: Spontaneous
  Country: US (occurrence: US)
  Receive Date: 20160411
  Receipt Date: 20160426
  Transmission Date: 20160815
  Serious: Yes (Other)
  Sender: FDA-Public Use
  Company Number: US-MDT-ADR-2016-00648

PATIENT
  Age: 44 Year
  Sex: Female

DRUGS (12)
  1. BUPIVACAINE. [Suspect]
     Active Substance: BUPIVACAINE
     Dosage: 7.6 MG/DAY
     Route: 037
     Dates: end: 20150603
  2. SYNTHROID [Suspect]
     Active Substance: LEVOTHYROXINE SODIUM
     Dosage: 200 MCG
  3. FENTANYL. [Suspect]
     Active Substance: FENTANYL
     Dosage: 630 MG/DAY
     Route: 037
     Dates: end: 20150603
  4. COMPOUNDED BACLOFEN [Suspect]
     Active Substance: BACLOFEN
     Dosage: 70 MCG/DAY
     Route: 037
     Dates: end: 20150603
  5. TOPAMAX [Suspect]
     Active Substance: TOPIRAMATE
     Dosage: 100 MG
  6. LEXAPRO [Suspect]
     Active Substance: ESCITALOPRAM OXALATE
     Dosage: 20 MG
  7. DILAUDID [Suspect]
     Active Substance: HYDROMORPHONE HYDROCHLORIDE
     Dosage: 3.78 MG/DAY
     Route: 037
     Dates: end: 20150603
  8. TIZANIDINE. [Suspect]
     Active Substance: TIZANIDINE
     Dosage: 2 MG
  9. BACLOFEN. [Suspect]
     Active Substance: BACLOFEN
     Dosage: 10 MG
  10. ADDERALL [Suspect]
     Active Substance: AMPHETAMINE ASPARTATE\AMPHETAMINE SULFATE\DEXTROAMPHETAMINE SACCHARATE\DEXTROAMPHETAMINE SULFATE
     Dosage: 10 MG
  11. REMERON [Suspect]
     Active Substance: MIRTAZAPINE
     Dosage: 115 MG
  12. MIDRIN [Suspect]
     Active Substance: ACETAMINOPHEN\DICHLORALPHENAZONE\ISOMETHEPTENE

REACTIONS (7)
  - Toxicity to various agents [Unknown]
  - Catheter site swelling [Unknown]
  - Fall [Unknown]
  - Loss of consciousness [Unknown]
  - Malaise [Unknown]
  - Drug withdrawal syndrome [Unknown]
  - Post lumbar puncture syndrome [Recovering/Resolving]

NARRATIVE: CASE EVENT DATE: 2014
